FAERS Safety Report 17056238 (Version 3)
Quarter: 2020Q1

REPORT INFORMATION
  Report Type: Report from Study
  Country: CN (occurrence: CN)
  Receive Date: 20191121
  Receipt Date: 20200101
  Transmission Date: 20200409
  Serious: Yes (Hospitalization, Other)
  Sender: FDA-Public Use
  Company Number: CN-ROCHE-2466586

PATIENT
  Age: 51 Year
  Sex: Male
  Weight: 47 kg

DRUGS (3)
  1. AVASTIN [Suspect]
     Active Substance: BEVACIZUMAB
     Route: 041
     Dates: start: 20190903, end: 20191015
  2. AVASTIN [Suspect]
     Active Substance: BEVACIZUMAB
     Indication: COLON CANCER
     Dosage: 300-400 MG ALTERNATIVE USE
     Route: 041
     Dates: start: 20160521
  3. AVASTIN [Suspect]
     Active Substance: BEVACIZUMAB
     Dosage: 200-300 MG ALTERNATIVE USE
     Route: 041
     Dates: start: 20170530

REACTIONS (5)
  - Proctalgia [Unknown]
  - Anal erosion [Unknown]
  - Anal abscess [Recovering/Resolving]
  - Anal abscess [Unknown]
  - Proctitis [Recovering/Resolving]
